FAERS Safety Report 5254397-3 (Version None)
Quarter: 2007Q1

REPORT INFORMATION
  Report Type: 
  Country: None (occurrence: None)
  Receive Date: 20070302
  Receipt Date: 20070222
  Transmission Date: 20070707
  Serious: Yes (Other)
  Sender: FDA-Public Use
  Company Number: US-ABBOTT-07P-163-0360412-00

PATIENT
  Sex: Female
  Weight: 65.376 kg

DRUGS (8)
  1. HUMIRA [Suspect]
     Indication: RHEUMATOID ARTHRITIS
     Route: 058
     Dates: start: 20030101, end: 20060801
  2. HUMIRA [Suspect]
     Route: 058
     Dates: start: 20060801, end: 20060801
  3. HUMIRA [Suspect]
     Route: 058
     Dates: start: 20061001, end: 20061101
  4. HUMIRA [Suspect]
     Route: 058
     Dates: start: 20061201, end: 20070122
  5. METHOTREXATE [Concomitant]
     Indication: RHEUMATOID ARTHRITIS
     Route: 048
     Dates: start: 19950101, end: 20070122
  6. CELECOXIB [Concomitant]
     Indication: RHEUMATOID ARTHRITIS
     Route: 048
     Dates: start: 19970101
  7. CYCLOBENZAPRINE HCL [Concomitant]
     Indication: DRUG USE FOR UNKNOWN INDICATION
     Route: 048
     Dates: start: 20060101
  8. FOLIC ACID [Concomitant]
     Indication: RHEUMATOID ARTHRITIS
     Route: 048
     Dates: start: 19950101

REACTIONS (3)
  - PNEUMONIA [None]
  - RHEUMATOID ARTHRITIS [None]
  - TENDON DISORDER [None]
